FAERS Safety Report 7809584-4 (Version None)
Quarter: 2011Q4

REPORT INFORMATION
  Report Type: 
  Country: None (occurrence: None)
  Receive Date: 20111012
  Receipt Date: 20111007
  Transmission Date: 20120403
  Serious: Yes (Death, Other)
  Sender: FDA-Public Use
  Company Number: PHHY2011DE88956

PATIENT
  Age: 49 Year
  Sex: Male

DRUGS (3)
  1. TACROLIMUS [Concomitant]
     Dosage: UNK UKN, UNK
  2. CYCLOSPORINE [Suspect]
     Indication: STEM CELL TRANSPLANT
     Dosage: UNK UKN, UNK
  3. MYCOPHENOLATE MOFETIL [Concomitant]
     Indication: IMMUNOSUPPRESSION
     Dosage: UNK UKN, UNK

REACTIONS (12)
  - CENTRAL NERVOUS SYSTEM LESION [None]
  - THROMBOCYTOPENIA [None]
  - MONOCLONAL IMMUNOGLOBULIN PRESENT [None]
  - RENAL IMPAIRMENT [None]
  - ATAXIA [None]
  - ACUTE GRAFT VERSUS HOST DISEASE IN INTESTINE [None]
  - HAEMORRHAGE [None]
  - EPSTEIN-BARR VIRUS TEST POSITIVE [None]
  - CONFUSIONAL STATE [None]
  - CYTOMEGALOVIRUS INFECTION [None]
  - EPSTEIN-BARR VIRUS ASSOCIATED LYMPHOPROLIFERATIVE DISORDER [None]
  - DIPLOPIA [None]
